FAERS Safety Report 5847490-5 (Version None)
Quarter: 2008Q3

REPORT INFORMATION
  Report Type: 
  Country: None (occurrence: None)
  Receive Date: 20080814
  Receipt Date: 20080724
  Transmission Date: 20090109
  Serious: Yes (Hospitalization)
  Sender: FDA-Public Use
  Company Number: 351410

PATIENT
  Age: 45 Year
  Sex: Female

DRUGS (2)
  1. COMPOUND W ONE STEP PADS(40% SALICYCLIC ACID=ACTIVE) [Suspect]
     Indication: MELANOCYTIC NAEVUS
     Dosage: SINGLE TOPICAL APPLICATION X 2HRS
     Route: 061
     Dates: start: 20080625, end: 20080625
  2. HALDOL [Concomitant]
     Indication: INTENTIONAL DRUG MISUSE

REACTIONS (6)
  - CELLULITIS [None]
  - CYST [None]
  - DRUG INEFFECTIVE [None]
  - INTENTIONAL DRUG MISUSE [None]
  - PAIN IN JAW [None]
  - SWELLING FACE [None]
